FAERS Safety Report 5075199-7 (Version None)
Quarter: 2006Q3

REPORT INFORMATION
  Report Type: 
  Country: None (occurrence: None)
  Receive Date: 20060809
  Receipt Date: 20060720
  Transmission Date: 20061208
  Serious: Yes (Hospitalization)
  Sender: FDA-Public Use
  Company Number: FR-BAYER-200610699BFR

PATIENT
  Age: 16 Year
  Sex: Male

DRUGS (8)
  1. CIFLOX [Suspect]
     Indication: UNEVALUABLE EVENT
     Dosage: TOTAL DAILY DOSE: 1000 MG  UNIT DOSE: 500 MG
     Route: 048
     Dates: start: 20060517, end: 20060529
  2. OFLOCET [Suspect]
     Indication: UNEVALUABLE EVENT
     Dosage: TOTAL DAILY DOSE: 400 MG  UNIT DOSE: 200 MG
     Route: 048
     Dates: start: 20060428, end: 20060517
  3. ROCEPHIN [Concomitant]
     Indication: UNEVALUABLE EVENT
     Route: 065
     Dates: end: 20060428
  4. FLAGYL [Concomitant]
     Indication: UNEVALUABLE EVENT
     Route: 065
     Dates: end: 20060428
  5. GENTAMICIN [Concomitant]
     Indication: UNEVALUABLE EVENT
     Route: 065
     Dates: end: 20060428
  6. TAZOCILLINE [Concomitant]
     Indication: UNEVALUABLE EVENT
     Dosage: TOTAL DAILY DOSE: 8 G  UNIT DOSE: 4 G
     Route: 042
     Dates: start: 20060511, end: 20060517
  7. ESKAZOLE [Concomitant]
     Indication: UNEVALUABLE EVENT
     Dosage: TOTAL DAILY DOSE: 800 MG
     Route: 048
     Dates: start: 20060511, end: 20060517
  8. LOVENOX [Concomitant]
     Indication: UNEVALUABLE EVENT
     Route: 058
     Dates: start: 20060501, end: 20060529

REACTIONS (4)
  - AGRANULOCYTOSIS [None]
  - LIVER ABSCESS [None]
  - NEUTROPENIA [None]
  - THROMBOCYTOPENIA [None]
